FAERS Safety Report 9016921 (Version 1)
Quarter: 2013Q1

REPORT INFORMATION
  Report Type: Spontaneous
  Country: US (occurrence: US)
  Receive Date: 20130117
  Receipt Date: 20130117
  Transmission Date: 20140127
  Serious: Yes (Other)
  Sender: FDA-Public Use
  Company Number: US-009507513-0909USA03370

PATIENT
  Age: 66 Year
  Sex: Male
  Weight: 88.45 kg

DRUGS (2)
  1. SINGULAIR [Suspect]
     Indication: COUGH
     Dosage: 1 DF, QD
     Route: 048
     Dates: start: 20090221, end: 20090227
  2. SINGULAIR [Suspect]
     Indication: ASTHMA

REACTIONS (2)
  - Condition aggravated [Unknown]
  - Muscle spasms [Unknown]
